FAERS Safety Report 11843075 (Version 2)
Quarter: 2016Q1

REPORT INFORMATION
  Report Type: Spontaneous
  Country: DE (occurrence: DE)
  Receive Date: 20151216
  Receipt Date: 20160129
  Transmission Date: 20160526
  Serious: Yes (Hospitalization)
  Sender: FDA-Public Use
  Company Number: DE-TAKEDA-2015TUS017874

PATIENT
  Sex: Female
  Weight: 62 kg

DRUGS (6)
  1. TACROLIMUS. [Concomitant]
     Active Substance: TACROLIMUS
     Dosage: 0.1 MG/KG, UNK
     Dates: end: 2015
  2. METRONIDAZOLE. [Concomitant]
     Active Substance: METRONIDAZOLE
  3. METHOTREXATE (METHOTREXATE SODIUM) [Concomitant]
     Active Substance: METHOTREXATE SODIUM
     Dosage: 25 MG, 1/WEEK
     Dates: end: 2015
  4. ENTYVIO [Suspect]
     Active Substance: VEDOLIZUMAB
     Indication: COLITIS ULCERATIVE
     Dosage: 300 MG, UNK
     Route: 042
     Dates: start: 201504
  5. PREDNISOLONE. [Concomitant]
     Active Substance: PREDNISOLONE
     Dosage: UNK
  6. CELEBREX [Concomitant]
     Active Substance: CELECOXIB
     Dosage: 400 MG, UNK

REACTIONS (5)
  - Female genital tract fistula [Not Recovered/Not Resolved]
  - Adjustment disorder with depressed mood [Recovering/Resolving]
  - Pain [Not Recovered/Not Resolved]
  - Sacroiliitis [Not Recovered/Not Resolved]
  - Arthropathy [Recovering/Resolving]

NARRATIVE: CASE EVENT DATE: 201504
